FAERS Safety Report 11719596 (Version 1)
Quarter: 2015Q4

REPORT INFORMATION
  Report Type: Spontaneous
  Country: US (occurrence: None)
  Receive Date: 20151109
  Receipt Date: 20151109
  Transmission Date: 20160304
  Serious: Yes (Life-Threatening)
  Sender: FDA-Public Use
  Company Number: None

PATIENT
  Age: 68 Year
  Sex: Female
  Weight: 68.04 kg

DRUGS (10)
  1. GABAPENTIN. [Concomitant]
     Active Substance: GABAPENTIN
  2. MULTIVIT [Concomitant]
     Active Substance: VITAMINS
  3. ATENOLOL. [Concomitant]
     Active Substance: ATENOLOL
  4. ALENDRONATE [Suspect]
     Active Substance: ALENDRONATE SODIUM
     Indication: OSTEOPOROSIS
     Route: 048
  5. LORAZAPAM [Concomitant]
     Active Substance: LORAZEPAM
  6. VITAMIN D [Concomitant]
     Active Substance: CHOLECALCIFEROL
  7. ADVIL [Concomitant]
     Active Substance: IBUPROFEN
  8. SERTRALINE [Concomitant]
     Active Substance: SERTRALINE HYDROCHLORIDE
  9. CITRACAL [Concomitant]
     Active Substance: CALCIUM CITRATE
  10. TRADER JOES ORGANIC MULTIVIT [Concomitant]

REACTIONS (8)
  - Osteoporosis [None]
  - Oral pain [None]
  - Dyspepsia [None]
  - Spinal fracture [None]
  - Condition aggravated [None]
  - Loose tooth [None]
  - Vitamin D deficiency [None]
  - Drug ineffective [None]

NARRATIVE: CASE EVENT DATE: 20111019
